FAERS Safety Report 4661591-9 (Version None)
Quarter: 2005Q2

REPORT INFORMATION
  Report Type: 
  Country: None (occurrence: None)
  Receive Date: 20050511
  Receipt Date: 20050511
  Transmission Date: 20051028
  Serious: Yes (Hospitalization)
  Sender: FDA-Public Use
  Company Number: None

PATIENT
  Age: 75 Year
  Sex: Male

DRUGS (5)
  1. TAMSULOSIN [Suspect]
     Indication: BENIGN PROSTATIC HYPERPLASIA
     Dosage: 0.4 MG QHS
     Dates: start: 20020527
  2. AMITRIPTYLINE [Suspect]
     Indication: DEPRESSION
     Dosage: 10 QHS
     Dates: start: 20040506
  3. FILGRASTIM [Concomitant]
  4. GUAIFENESIN [Concomitant]
  5. SERTRALINE HCL [Concomitant]

REACTIONS (2)
  - LOSS OF CONSCIOUSNESS [None]
  - ORTHOSTATIC HYPOTENSION [None]
